FAERS Safety Report 6087713-3 (Version None)
Quarter: 2009Q1

REPORT INFORMATION
  Report Type: 
  Country: None (occurrence: None)
  Receive Date: 20090223
  Receipt Date: 20090211
  Transmission Date: 20090719
  Serious: Yes (Other)
  Sender: FDA-Public Use
  Company Number: FR-ROCHE-601454

PATIENT
  Sex: Female
  Weight: 69 kg

DRUGS (2)
  1. CAPECITABINE [Suspect]
     Dosage: 825 MG/M^2, 2XPER DAY, FROM D1-14
     Route: 048
     Dates: start: 20080905
  2. DOCETAXEL [Suspect]
     Dosage: 75MG/M^2 ON DAY 1 WITHDRAWN FROM STUDY
     Route: 042
     Dates: start: 20080905

REACTIONS (1)
  - GENERAL PHYSICAL HEALTH DETERIORATION [None]
